FAERS Safety Report 18322641 (Version 1)
Quarter: 2020Q3

REPORT INFORMATION
  Report Type: Spontaneous
  Country: US (occurrence: US)
  Receive Date: 20200928
  Receipt Date: 20200928
  Transmission Date: 20201103
  Serious: No
  Sender: FDA-Public Use
  Company Number: US-BAUSCH-BL-2020-027161

PATIENT
  Sex: Female

DRUGS (1)
  1. LUMIFY [Suspect]
     Active Substance: BRIMONIDINE TARTRATE
     Indication: OCULAR HYPERAEMIA
     Dosage: ONE DROP IN EACH EYE DAILY
     Route: 047
     Dates: start: 20200914, end: 20200917

REACTIONS (3)
  - Visual impairment [Recovered/Resolved]
  - Therapeutic product effect incomplete [Unknown]
  - Eye disorder [Recovered/Resolved]

NARRATIVE: CASE EVENT DATE: 202009
